FAERS Safety Report 7624628-0 (Version None)
Quarter: 2011Q3

REPORT INFORMATION
  Report Type: 
  Country: None (occurrence: None)
  Receive Date: 20110720
  Receipt Date: 20110718
  Transmission Date: 20111222
  Serious: Yes (Other)
  Sender: FDA-Public Use
  Company Number: US-AMGEN-QUU423343

PATIENT
  Age: 52 Year
  Sex: Male
  Weight: 116.55 kg

DRUGS (4)
  1. INTERFERON [Concomitant]
  2. IMMUNOGLOBULINS [Concomitant]
  3. NPLATE [Suspect]
     Indication: IDIOPATHIC THROMBOCYTOPENIC PURPURA
     Dosage: 480 A?G, QWK
     Route: 058
     Dates: start: 20090217, end: 20100324
  4. CORTICOSTEROID NOS [Concomitant]

REACTIONS (1)
  - HEPATITIS C [None]
